FAERS Safety Report 25941732 (Version 1)
Quarter: 2025Q4

REPORT INFORMATION
  Report Type: Spontaneous
  Country: US (occurrence: US)
  Receive Date: 20251020
  Receipt Date: 20251020
  Transmission Date: 20260117
  Serious: No
  Sender: JUBILANT
  Company Number: US-JUBILANT CADISTA PHARMACEUTICALS INC.-2025JUB00082

PATIENT
  Age: 39 Year
  Sex: Female

DRUGS (2)
  1. PREDNISONE [Suspect]
     Active Substance: PREDNISONE
     Dosage: UNK
  2. PREDNISONE [Suspect]
     Active Substance: PREDNISONE
     Dosage: EVERY TIME SHE GOT DOWN TO 0.5MG,

REACTIONS (4)
  - Feeling abnormal [Unknown]
  - Hypersomnia [Recovering/Resolving]
  - Eating disorder [Unknown]
  - Fatigue [Recovering/Resolving]
